FAERS Safety Report 5786917-4 (Version None)
Quarter: 2008Q2

REPORT INFORMATION
  Report Type: 
  Country: None (occurrence: None)
  Receive Date: 20080625
  Receipt Date: 20080620
  Transmission Date: 20081010
  Serious: Yes (Life-Threatening, Hospitalization, Other)
  Sender: FDA-Public Use
  Company Number: AU-JNJFOC-20080505505

PATIENT
  Sex: Female
  Weight: 81.1 kg

DRUGS (22)
  1. NESIRITIDE [Suspect]
     Route: 042
  2. NESIRITIDE [Suspect]
     Indication: CARDIAC FAILURE ACUTE
     Route: 042
  3. FUROSEMIDE [Concomitant]
     Route: 048
  4. PREDNISOLONE [Concomitant]
     Route: 048
  5. ACETAMINOPHEN [Concomitant]
     Route: 048
  6. ACETAMINOPHEN [Concomitant]
     Route: 048
  7. CALCIUM CARBONATE [Concomitant]
     Route: 048
  8. CHOLECALCIFEROL [Concomitant]
     Route: 048
  9. ASPIRIN [Concomitant]
     Route: 048
  10. AMOXICILLIN [Concomitant]
     Route: 048
  11. CLAVULANATE POTASSIUM [Concomitant]
     Route: 048
  12. ROXITHROMYCIN [Concomitant]
     Route: 048
  13. CARDIZEM [Concomitant]
     Route: 048
  14. MONODUR [Concomitant]
     Route: 048
  15. ZOCOR [Concomitant]
     Route: 048
  16. BUDESONIDE [Concomitant]
     Route: 050
  17. EFORMOTEROL [Concomitant]
     Route: 050
  18. SPIRONOLACTONE [Concomitant]
     Route: 048
  19. PERINDOPRIL ERBUMINE [Concomitant]
     Route: 048
  20. OXYNORM [Concomitant]
     Route: 048
  21. ALBUTEROL [Concomitant]
     Route: 050
  22. CODEINE [Concomitant]
     Route: 048

REACTIONS (1)
  - PULMONARY EMBOLISM [None]
